FAERS Safety Report 6602056-4 (Version None)
Quarter: 2010Q1

REPORT INFORMATION
  Report Type: 
  Country: None (occurrence: None)
  Receive Date: 20100225
  Receipt Date: 20100215
  Transmission Date: 20100710
  Serious: Yes (Hospitalization, Other)
  Sender: FDA-Public Use
  Company Number: US-BAXTER-2010BH002696

PATIENT
  Age: 70 Year
  Sex: Male

DRUGS (2)
  1. DIANEAL [Suspect]
     Indication: PERITONEAL DIALYSIS
     Route: 033
     Dates: end: 20100204
  2. DIANEAL [Suspect]
     Indication: PERITONEAL DIALYSIS
     Route: 033
     Dates: end: 20100204

REACTIONS (6)
  - APPENDICITIS PERFORATED [None]
  - DIARRHOEA [None]
  - GALLBLADDER NECROSIS [None]
  - INTESTINAL MASS [None]
  - PERITONITIS BACTERIAL [None]
  - PYREXIA [None]
